FAERS Safety Report 8920541 (Version 3)
Quarter: 2013Q2

REPORT INFORMATION
  Report Type: Spontaneous
  Country: US (occurrence: US)
  Receive Date: 20121121
  Receipt Date: 20130426
  Transmission Date: 20140414
  Serious: Yes (Hospitalization, Disabling, Other)
  Sender: FDA-Public Use
  Company Number: US-009507513-1211USA008132

PATIENT
  Sex: Female

DRUGS (5)
  1. FOSAMAX [Suspect]
     Indication: OSTEOPENIA
     Dosage: 10 MG, UNK
     Route: 048
     Dates: start: 1998, end: 2007
  2. FOSAMAX [Suspect]
     Indication: OSTEOPOROSIS
  3. VITAMINS (UNSPECIFIED) [Concomitant]
     Dosage: 1 DAILY
     Route: 048
     Dates: start: 1972
  4. CALCIUM (UNSPECIFIED) [Concomitant]
     Dosage: 1200 MG, UNK
     Route: 048
     Dates: start: 1992
  5. LORAZEPAM [Concomitant]
     Indication: ANXIETY
     Dosage: 0.5 MG BID PRN
     Dates: start: 1970

REACTIONS (10)
  - Femur fracture [Unknown]
  - Intramedullary rod insertion [Unknown]
  - Osteoporosis [Unknown]
  - Multiple fractures [Unknown]
  - Femur fracture [Unknown]
  - Bone density decreased [Unknown]
  - Squamous cell carcinoma of the oral cavity [Unknown]
  - Surgery [Unknown]
  - Foot fracture [Unknown]
  - Anxiety [Unknown]
